FAERS Safety Report 8880764 (Version 1)
Quarter: 2012Q4

REPORT INFORMATION
  Report Type: 
  Country: FR (occurrence: FR)
  Receive Date: 20121101
  Receipt Date: 20121101
  Transmission Date: 20130627
  Serious: Yes (Hospitalization)
  Sender: FDA-Public Use
  Company Number: FR-GLAXOSMITHKLINE-B0840103A

PATIENT
  Age: 78 Year
  Sex: Female

DRUGS (16)
  1. DERMOVAL [Suspect]
     Indication: ECZEMA
     Route: 050
     Dates: start: 20120601, end: 20120604
  2. NOVOMIX [Concomitant]
  3. NOVORAPID [Concomitant]
  4. KARDEGIC [Concomitant]
  5. ESOMEPRAZOLE [Concomitant]
  6. ATORVASTATINE [Concomitant]
  7. LOSARTAN [Concomitant]
  8. FUROSEMIDE [Concomitant]
  9. AMLODIPINE [Concomitant]
  10. VENTOLINE [Concomitant]
  11. SERETIDE [Concomitant]
  12. SINGULAIR [Concomitant]
  13. PARACETAMOL [Concomitant]
  14. NEURONTIN [Concomitant]
  15. LAMOTRIGINE [Concomitant]
  16. ZYRTEC [Concomitant]

REACTIONS (1)
  - Diabetes mellitus inadequate control [Recovered/Resolved]
